FAERS Safety Report 8314519-4 (Version None)
Quarter: 2012Q2

REPORT INFORMATION
  Report Type: 
  Country: None (occurrence: None)
  Receive Date: 20120426
  Receipt Date: 20120419
  Transmission Date: 20120825
  Serious: Yes (Other)
  Sender: FDA-Public Use
  Company Number: FR-ALLERGAN-1115372US

PATIENT
  Age: 51 Year
  Sex: Male

DRUGS (3)
  1. LUMIGAN [Suspect]
     Indication: OCULAR HYPERTENSION
     Dosage: 1 GTT, UNK
     Dates: end: 20111101
  2. VITAMINE A DULCIS [Concomitant]
     Indication: KERATITIS
     Dosage: 1 DF, QPM
     Route: 047
     Dates: start: 20110401
  3. LUMIGAN [Suspect]
     Indication: OCULAR HYPERTENSION
     Dosage: 1 GTT, UNK
     Dates: start: 20070601

REACTIONS (2)
  - ULCERATIVE KERATITIS [None]
  - CORNEAL INFILTRATES [None]
